FAERS Safety Report 6932839-2 (Version None)
Quarter: 2010Q3

REPORT INFORMATION
  Report Type: 
  Country: None (occurrence: None)
  Receive Date: 20100819
  Receipt Date: 20100811
  Transmission Date: 20110219
  Serious: Yes (Hospitalization)
  Sender: FDA-Public Use
  Company Number: JP-ELI_LILLY_AND_COMPANY-JP201008003596

PATIENT
  Age: 61 Year
  Sex: Male
  Weight: 69 kg

DRUGS (8)
  1. GEMZAR [Suspect]
     Indication: PANCREATIC CARCINOMA STAGE IV
     Dosage: 1510 MG, UNK
     Route: 042
     Dates: start: 20090617, end: 20100105
  2. GEMZAR [Suspect]
     Dosage: 1510 MG, UNK
     Route: 042
     Dates: start: 20100311, end: 20100422
  3. GEMZAR [Suspect]
     Dosage: 1510 MG, WEEKLY (1/W)
     Route: 042
     Dates: start: 20100507, end: 20100527
  4. TS 1 [Concomitant]
     Indication: PANCREATIC CARCINOMA STAGE IV
     Dosage: 40 MG, 2/D
     Route: 048
     Dates: start: 20090617, end: 20100105
  5. TS 1 [Concomitant]
     Dosage: 40 MG, 2/D
     Route: 048
     Dates: start: 20100507, end: 20100602
  6. LOXONIN [Concomitant]
     Dosage: 60 MG, 3/D
     Route: 048
  7. ALTAT [Concomitant]
     Dosage: 37.5 MG, 3/D
     Route: 048
  8. KADIAN [Concomitant]
     Dosage: 20 MG, DAILY (1/D)
     Route: 048

REACTIONS (2)
  - DISSEMINATED INTRAVASCULAR COAGULATION [None]
  - INTERSTITIAL LUNG DISEASE [None]
